FAERS Safety Report 8513675-2 (Version None)
Quarter: 2012Q3

REPORT INFORMATION
  Report Type: 
  Country: None (occurrence: None)
  Receive Date: 20120717
  Receipt Date: 20120705
  Transmission Date: 20120928
  Serious: Yes (Death, Hospitalization)
  Sender: FDA-Public Use
  Company Number: KR-BRISTOL-MYERS SQUIBB COMPANY-16603557

PATIENT
  Age: 68 Year
  Sex: Male
  Weight: 162 kg

DRUGS (3)
  1. NECITUMUMAB [Suspect]
     Indication: NON-SMALL CELL LUNG CANCER
     Dosage: LIQUID LAST INF ON 25APR12 INF:18 EVERY 21 DAYS/CYCLE
     Route: 042
     Dates: start: 20111103
  2. GEMCITABINE HYDROCHLORIDE [Suspect]
     Indication: NON-SMALL CELL LUNG CANCER
     Dosage: INF:10 LAST INF ON 02MAR2012 EVERY 21 DAYS/CYCLE
     Route: 042
     Dates: start: 20111103
  3. CISPLATIN [Suspect]
     Indication: NON-SMALL CELL LUNG CANCER
     Dosage: INF:6 LAST INF ON 23FEB2012
     Route: 042
     Dates: start: 20111103

REACTIONS (2)
  - PNEUMONIA [None]
  - INTERSTITIAL LUNG DISEASE [None]
